FAERS Safety Report 20171520 (Version 1)
Quarter: 2021Q4

REPORT INFORMATION
  Report Type: Spontaneous
  Country: US (occurrence: None)
  Receive Date: 20211209
  Receipt Date: 20211209
  Transmission Date: 20220303
  Serious: Yes (Death)
  Sender: FDA-Public Use
  Company Number: None

PATIENT
  Age: 64 Year
  Sex: Female
  Weight: 119.5 kg

DRUGS (1)
  1. BARICITINIB [Suspect]
     Active Substance: BARICITINIB
     Indication: COVID-19 pneumonia
     Dosage: FREQUENCY : DAILY;?OTHER ROUTE : ORAL GASTRIC;?
     Route: 050
     Dates: start: 20211007, end: 20211017

REACTIONS (4)
  - Deep vein thrombosis [None]
  - Hypotension [None]
  - Pulmonary embolism [None]
  - Death [None]

NARRATIVE: CASE EVENT DATE: 20211017
